FAERS Safety Report 8860032 (Version 1)
Quarter: 2012Q4

REPORT INFORMATION
  Report Type: 
  Country: US (occurrence: US)
  Receive Date: 20121025
  Receipt Date: 20121025
  Transmission Date: 20130627
  Serious: Yes (Other)
  Sender: FDA-Public Use
  Company Number: US-BIOGENIDEC-2012BI046891

PATIENT
  Sex: Female

DRUGS (2)
  1. AVONEX [Suspect]
     Indication: MULTIPLE SCLEROSIS
     Route: 030
  2. TYSABRI [Concomitant]
     Indication: MULTIPLE SCLEROSIS
     Route: 042

REACTIONS (9)
  - Cellulitis [Unknown]
  - Vasculitis [Unknown]
  - Ischaemia [Unknown]
  - Candidiasis [Unknown]
  - Arthropathy [Unknown]
  - Urinary tract infection [Unknown]
  - Intervertebral disc protrusion [Not Recovered/Not Resolved]
  - Lyme disease [Unknown]
  - Demyelination [Unknown]
